FAERS Safety Report 9197240 (Version 2)
Quarter: 2013Q4

REPORT INFORMATION
  Report Type: Spontaneous
  Country: US (occurrence: US)
  Receive Date: 20130328
  Receipt Date: 20131127
  Transmission Date: 20140711
  Serious: Yes (Hospitalization, Other)
  Sender: FDA-Public Use
  Company Number: US-BAYER-2013-039065

PATIENT
  Age: 34 Year
  Sex: Female

DRUGS (19)
  1. YAZ [Suspect]
  2. YASMIN [Suspect]
  3. OCELLA [Suspect]
  4. VALIUM [Concomitant]
     Indication: SLEEP DISORDER THERAPY
     Dosage: 10 MG, PRN EVERY BED TIME
     Route: 048
  5. VALIUM [Concomitant]
     Indication: SLEEP DISORDER THERAPY
     Dosage: 25 MG, UNK
  6. VENTOLIN [Concomitant]
     Indication: DYSPNOEA
     Dosage: 0.083 %, EVERY 4 HOURS PRN
     Route: 045
  7. WELLBUTRIN [Concomitant]
     Dosage: 150 MG, DAILY
     Route: 048
  8. MULTIVITAMIN [Concomitant]
  9. PRILOSEC [Concomitant]
     Dosage: 30 MG, ONCE DAILY
     Route: 048
  10. CARTIA XT [Concomitant]
     Dosage: 240 MG, ONCE DAILY
     Route: 048
  11. LEXAPRO [Concomitant]
     Dosage: 10 MG, DAILY
     Route: 048
  12. GLUCOPHAGE [Concomitant]
     Dosage: 500 MG, UNK
     Route: 048
  13. SPIRONOLACTONE [Concomitant]
     Dosage: 25 MG, 1 TABLET EVERY MORNING
     Route: 048
  14. AMITRIPTYLINE HCL [Concomitant]
     Indication: SLEEP DISORDER THERAPY
     Dosage: 25 MG, PRN AT HS
     Route: 048
  15. FAMOTIDINE [Concomitant]
     Dosage: 40 MG,1 TABLET AT BED TIME
     Route: 048
  16. FLOVENT HFA [Concomitant]
     Dosage: 220 ?G/ ACT 2 PUFFS DAILY
  17. LANSOPRAZOLE [Concomitant]
     Dosage: 30 MG, EVERY MORNING
     Route: 048
  18. METFORMIN [Concomitant]
     Dosage: 500 MG, DAILY
     Route: 048
  19. SINGULAIR [Concomitant]
     Dosage: 10 MG, 1 TABLE EVERY MORNING
     Route: 048

REACTIONS (5)
  - Gallbladder injury [None]
  - Biliary dyskinesia [None]
  - Injury [None]
  - Pain [None]
  - Pain [None]
